FAERS Safety Report 5657384-6 (Version None)
Quarter: 2008Q1

REPORT INFORMATION
  Report Type: 
  Country: None (occurrence: None)
  Receive Date: 20080310
  Receipt Date: 20070815
  Transmission Date: 20080703
  Serious: Yes (Death, Other)
  Sender: FDA-Public Use
  Company Number: US-PFIZER INC-2007069252

PATIENT
  Age: 42 Year
  Sex: Female

DRUGS (1)
  1. SUTENT [Suspect]
     Indication: ANGIOSARCOMA
     Dosage: DAILY DOSE:37.5MG-FREQ:DAILY

REACTIONS (5)
  - ANGIOSARCOMA [None]
  - BLOOD CREATININE INCREASED [None]
  - BLOOD PRESSURE INCREASED [None]
  - DISEASE PROGRESSION [None]
  - PROTEINURIA [None]
